FAERS Safety Report 10838618 (Version 1)
Quarter: 2015Q1

REPORT INFORMATION
  Report Type: Report from Study
  Country: US (occurrence: US)
  Receive Date: 20150219
  Receipt Date: 20150219
  Transmission Date: 20150721
  Serious: No
  Sender: FDA-Public Use
  Company Number: US-ABBVIE-14P-163-1224117-00

PATIENT
  Age: 79 Year
  Sex: Female
  Weight: 63.56 kg

DRUGS (8)
  1. METHOTREXATE [Concomitant]
     Active Substance: METHOTREXATE
     Indication: RHEUMATOID ARTHRITIS
  2. LASIX [Concomitant]
     Active Substance: FUROSEMIDE
     Indication: PERIPHERAL SWELLING
  3. POTASSIUM [Concomitant]
     Active Substance: POTASSIUM
     Indication: ELECTROLYTE SUBSTITUTION THERAPY
  4. HUMIRA [Suspect]
     Active Substance: ADALIMUMAB
     Indication: SJOGREN^S SYNDROME
  5. HUMIRA [Suspect]
     Active Substance: ADALIMUMAB
     Indication: RHEUMATOID ARTHRITIS
     Dates: start: 201403, end: 201404
  6. ASPIRIN. [Concomitant]
     Active Substance: ASPIRIN
     Indication: PRODUCT USED FOR UNKNOWN INDICATION
  7. FOLIC ACID. [Concomitant]
     Active Substance: FOLIC ACID
     Indication: PRODUCT USED FOR UNKNOWN INDICATION
  8. PRILOSEC [Concomitant]
     Active Substance: OMEPRAZOLE MAGNESIUM
     Indication: GASTROOESOPHAGEAL REFLUX DISEASE

REACTIONS (1)
  - Fungal infection [Recovering/Resolving]

NARRATIVE: CASE EVENT DATE: 201403
